FAERS Safety Report 20880276 (Version 2)
Quarter: 2022Q2

REPORT INFORMATION
  Report Type: Report from Study
  Country: CA (occurrence: CA)
  Receive Date: 20220526
  Receipt Date: 20220611
  Transmission Date: 20220720
  Serious: Yes (Other)
  Sender: FDA-Public Use
  Company Number: CA-TEVA-2022-CA-2039368

PATIENT

DRUGS (3)
  1. TRAZODONE [Interacting]
     Active Substance: TRAZODONE HYDROCHLORIDE
     Indication: Parkinsonism
     Route: 065
  2. ESCITALOPRAM [Interacting]
     Active Substance: ESCITALOPRAM OXALATE
     Indication: Parkinsonism
     Route: 065
  3. RASAGILINE [Interacting]
     Active Substance: RASAGILINE
     Indication: Parkinsonism
     Route: 065

REACTIONS (2)
  - Serotonin syndrome [Unknown]
  - Drug interaction [Unknown]
